FAERS Safety Report 4377094-5 (Version None)
Quarter: 2004Q2

REPORT INFORMATION
  Report Type: 
  Country: None (occurrence: None)
  Receive Date: 20040615
  Receipt Date: 20040510
  Transmission Date: 20050107
  Serious: Yes (Death)
  Sender: FDA-Public Use
  Company Number: 200414976GDDC

PATIENT
  Age: 61 Year
  Sex: Male

DRUGS (3)
  1. LEFLUNOMIDE [Suspect]
     Indication: RHEUMATOID ARTHRITIS
     Route: 048
     Dates: start: 20030801, end: 20040401
  2. TYLEX [Concomitant]
     Indication: PAIN
     Dosage: DOSE: 1-2
     Route: 048
     Dates: start: 20010101
  3. NABUMETONE [Concomitant]
     Indication: PAIN
     Dosage: DOSE: 500 (1-2)
     Route: 048
     Dates: start: 20030101

REACTIONS (2)
  - ACUTE MYOCARDIAL INFARCTION [None]
  - CORONARY ARTERY ATHEROSCLEROSIS [None]
